FAERS Safety Report 8707615 (Version 4)
Quarter: 2013Q1

REPORT INFORMATION
  Report Type: Spontaneous
  Country: US (occurrence: US)
  Receive Date: 20120805
  Receipt Date: 20130318
  Transmission Date: 20140127
  Serious: No
  Sender: FDA-Public Use
  Company Number: US-ASTRAZENECA-2012SE53515

PATIENT
  Age: 73 Year
  Sex: Female
  Weight: 70.8 kg

DRUGS (13)
  1. NEXIUM [Suspect]
     Indication: GASTROOESOPHAGEAL REFLUX DISEASE
     Route: 048
     Dates: start: 2003, end: 2006
  2. NEXIUM [Suspect]
     Indication: GASTROOESOPHAGEAL REFLUX DISEASE
     Route: 048
     Dates: start: 2006, end: 201201
  3. NEXIUM [Suspect]
     Indication: GASTROOESOPHAGEAL REFLUX DISEASE
     Route: 048
     Dates: start: 20120731
  4. CRESTOR [Suspect]
     Indication: BLOOD CHOLESTEROL INCREASED
     Route: 048
     Dates: start: 201110
  5. CRESTOR [Suspect]
     Indication: BLOOD CHOLESTEROL INCREASED
     Route: 048
  6. CRESTOR [Suspect]
     Indication: BLOOD CHOLESTEROL INCREASED
     Route: 048
  7. ACIPHEX [Suspect]
     Route: 065
  8. OXYBUTYNIN CL ER [Suspect]
     Indication: BLADDER DISORDER
     Route: 065
  9. OXYBUTYNIN CL ER [Suspect]
     Indication: RENAL DISORDER
     Route: 065
  10. VERAPAMIL [Concomitant]
     Indication: HYPERTENSION
  11. BENZOCAR [Concomitant]
     Indication: HYPERTENSION
  12. JANUVIA [Concomitant]
     Indication: DIABETES MELLITUS
  13. MACRODANTIN [Concomitant]

REACTIONS (12)
  - Diabetes mellitus [Unknown]
  - Blood urine present [Unknown]
  - Gastrooesophageal reflux disease [Unknown]
  - Blood cholesterol increased [Unknown]
  - Congenital cystic kidney disease [Unknown]
  - Bladder disorder [Unknown]
  - Muscle spasms [Unknown]
  - Pain in extremity [Unknown]
  - Hypertension [Unknown]
  - Malaise [Unknown]
  - Drug dose omission [Unknown]
  - Off label use [Unknown]
